FAERS Safety Report 6055697-X (Version None)
Quarter: 2009Q1

REPORT INFORMATION
  Report Type: 
  Country: None (occurrence: None)
  Receive Date: 20090126
  Receipt Date: 20090114
  Transmission Date: 20090719
  Serious: Yes (Other)
  Sender: FDA-Public Use
  Company Number: CHNY2009SE00593

PATIENT
  Sex: Female

DRUGS (2)
  1. NICOTINE [Suspect]
     Indication: SMOKING CESSATION THERAPY
     Dosage: 3 PATCHES IN TOTAL, TRANSDERMAL;
     Route: 062
     Dates: start: 20081101, end: 20081101
  2. NICOTINE [Suspect]
     Indication: SMOKING CESSATION THERAPY
     Dosage: 3 PATCHES IN TOTAL, TRANSDERMAL;
     Route: 062
     Dates: start: 20090102, end: 20090102

REACTIONS (5)
  - BLISTER [None]
  - ERYTHEMA [None]
  - OPEN WOUND [None]
  - RASH [None]
  - SKIN SWELLING [None]
